FAERS Safety Report 8532836-X (Version None)
Quarter: 2012Q3

REPORT INFORMATION
  Report Type: 
  Country: None (occurrence: None)
  Receive Date: 20120705
  Receipt Date: 20120628
  Transmission Date: 20120928
  Serious: Yes (Hospitalization)
  Sender: FDA-Public Use
  Company Number: 2012032623

PATIENT
  Age: 60 Year
  Sex: Male

DRUGS (8)
  1. LYRICA [Concomitant]
  2. PANTOPRAZOLE SODIUM [Concomitant]
  3. CYMBALTA [Concomitant]
  4. CITALOPRAM HYDROBROMIDE [Concomitant]
  5. RITUXIMAB (RITUXIMAB) [Concomitant]
  6. PRIVIGEN [Suspect]
     Indication: SECONDARY IMMUNODEFICIENCY
     Dosage: 10 G QD, INFUSION RATE 1.0ML/MIN, 20 G QD
     Route: 042
     Dates: start: 20120611, end: 20120611
  7. PRIVIGEN [Suspect]
     Indication: SECONDARY IMMUNODEFICIENCY
     Dosage: 10 G QD, INFUSION RATE 1.0ML/MIN, 20 G QD
     Route: 042
     Dates: start: 20120611, end: 20120611
  8. ATACAND [Concomitant]

REACTIONS (3)
  - CYANOSIS [None]
  - CHEST DISCOMFORT [None]
  - ENTEROBACTER PNEUMONIA [None]
